FAERS Safety Report 8346715-4 (Version None)
Quarter: 2012Q2

REPORT INFORMATION
  Report Type: 
  Country: None (occurrence: None)
  Receive Date: 20120509
  Receipt Date: 20120504
  Transmission Date: 20120825
  Serious: Yes (Hospitalization)
  Sender: FDA-Public Use
  Company Number: US-SANOFI-AVENTIS-2012SA032158

PATIENT
  Age: 16 Year
  Sex: Male

DRUGS (4)
  1. LOVENOX [Concomitant]
  2. MS CONTIN [Concomitant]
  3. TAXOTERE [Suspect]
     Indication: OSTEOSARCOMA METASTATIC
     Route: 042
  4. GEMCITABINE [Concomitant]
     Route: 042

REACTIONS (4)
  - ORTHOSTATIC HYPOTENSION [None]
  - TACHYPNOEA [None]
  - OXYGEN SATURATION DECREASED [None]
  - DEHYDRATION [None]
